FAERS Safety Report 12759157 (Version 4)
Quarter: 2016Q4

REPORT INFORMATION
  Report Type: Spontaneous
  Country: DE (occurrence: DE)
  Receive Date: 20160919
  Receipt Date: 20161221
  Transmission Date: 20170207
  Serious: Yes (Other)
  Sender: FDA-Public Use
  Company Number: DE-AMGEN-DEUSP2016124674

PATIENT
  Sex: Female
  Weight: 80 kg

DRUGS (16)
  1. PROLIA [Suspect]
     Active Substance: DENOSUMAB
     Indication: OSTEOPOROSIS POSTMENOPAUSAL
     Dosage: 60 MG, Q6MO
     Route: 058
     Dates: start: 20150609, end: 20160127
  2. MORPHINE [Concomitant]
     Active Substance: MORPHINE
     Dosage: 4 MG, UNK
  3. DECORTIN [Concomitant]
     Active Substance: PREDNISONE
     Dosage: 10 AND 7.5 MG, ALTERNATING
  4. IMUREK [Concomitant]
     Active Substance: AZATHIOPRINE
     Dosage: 50 MG, TID
  5. TOREM [Concomitant]
     Active Substance: TORSEMIDE
     Dosage: 5 MG, QD
  6. ARCOXIA [Concomitant]
     Active Substance: ETORICOXIB
     Dosage: 30 MG/60MG, QD
  7. REVATIO [Concomitant]
     Active Substance: SILDENAFIL CITRATE
     Dosage: 20 MG, TID
  8. ASPIRIN. [Concomitant]
     Active Substance: ASPIRIN
     Dosage: 100 UNK, QD
  9. BOSENTAN. [Concomitant]
     Active Substance: BOSENTAN
     Dosage: UNK
  10. CALCIVIT [Concomitant]
     Dosage: 600 MG, QID
  11. NIFEDIPINE. [Concomitant]
     Active Substance: NIFEDIPINE
     Dosage: 10 MG, QID
  12. HYDROMORPHONE [Concomitant]
     Active Substance: HYDROMORPHONE
     Dosage: 4 MG, QID
  13. CORTISONE [Concomitant]
     Active Substance: CORTISONE\HYDROCORTISONE
     Dosage: 10 MG, UNK
  14. OMEP [Concomitant]
     Active Substance: OMEPRAZOLE
     Dosage: 40 MG, QD
  15. ENALAPRIL [Concomitant]
     Active Substance: ENALAPRIL
     Dosage: UNK
  16. OPSUMIT [Concomitant]
     Active Substance: MACITENTAN
     Dosage: 10 MG, QD

REACTIONS (7)
  - Dyspnoea [Not Recovered/Not Resolved]
  - Scleroderma [Not Recovered/Not Resolved]
  - Oedema [Unknown]
  - Pulmonary hypertension [Unknown]
  - Lung disorder [Not Recovered/Not Resolved]
  - Ulcer [Unknown]
  - Pruritus [Unknown]

NARRATIVE: CASE EVENT DATE: 2016
